FAERS Safety Report 10576094 (Version 1)
Quarter: 2014Q4

REPORT INFORMATION
  Report Type: Spontaneous
  Country: US (occurrence: None)
  Receive Date: 20141110
  Receipt Date: 20141110
  Transmission Date: 20150529
  Serious: Yes (Hospitalization, Disabling)
  Sender: FDA-Public Use
  Company Number: None

PATIENT
  Age: 58 Year
  Sex: Male

DRUGS (1)
  1. INDAPAMIDE. [Suspect]
     Active Substance: INDAPAMIDE
     Indication: HYPERTENSION
     Dosage: 1 PILL
     Route: 048
     Dates: start: 20141015, end: 20141030

REACTIONS (6)
  - Loss of consciousness [None]
  - Back pain [None]
  - Hyponatraemia [None]
  - Fatigue [None]
  - Dizziness [None]
  - Myalgia [None]

NARRATIVE: CASE EVENT DATE: 20141031
